FAERS Safety Report 23429340 (Version 11)
Quarter: 2024Q3

REPORT INFORMATION
  Report Type: Spontaneous
  Country: CA (occurrence: CA)
  Receive Date: 20240122
  Receipt Date: 20240925
  Transmission Date: 20241017
  Serious: Yes (Hospitalization, Other)
  Sender: SANDOZ
  Company Number: CA-002147023-PHHY2017CA096465

PATIENT
  Age: 71 Year
  Sex: Female
  Weight: 105 kg

DRUGS (21)
  1. DEXAMETHASONE [Suspect]
     Active Substance: DEXAMETHASONE
     Indication: Immune thrombocytopenia
     Dosage: UNK
     Route: 065
  2. PREDNISONE [Suspect]
     Active Substance: PREDNISONE
     Indication: Immune thrombocytopenia
     Dosage: UNK
     Route: 065
  3. RITUXIMAB [Suspect]
     Active Substance: RITUXIMAB
     Indication: Immune thrombocytopenia
     Dosage: 375 MG/M2 (4 DOSES)
     Route: 065
     Dates: start: 201608
  4. METHOTREXATE [Interacting]
     Active Substance: METHOTREXATE
     Indication: Rheumatoid arthritis
     Dosage: UNK
     Route: 065
  5. ELTROMBOPAG OLAMINE [Interacting]
     Active Substance: ELTROMBOPAG OLAMINE
     Dosage: 0.5 DF, Q2W
     Route: 048
  6. ELTROMBOPAG OLAMINE [Interacting]
     Active Substance: ELTROMBOPAG OLAMINE
     Dosage: 0.5 DF, BIW
     Route: 048
  7. ELTROMBOPAG OLAMINE [Interacting]
     Active Substance: ELTROMBOPAG OLAMINE
     Dosage: 1 DF
     Route: 048
  8. ELTROMBOPAG OLAMINE [Interacting]
     Active Substance: ELTROMBOPAG OLAMINE
     Indication: Immune thrombocytopenia
     Dosage: 1 DF (50 MG), UNK
     Route: 048
     Dates: start: 20170228
  9. ELTROMBOPAG OLAMINE [Interacting]
     Active Substance: ELTROMBOPAG OLAMINE
     Dosage: 25 MG, QW
     Route: 048
  10. ELTROMBOPAG OLAMINE [Interacting]
     Active Substance: ELTROMBOPAG OLAMINE
     Dosage: 25 MG, QD
     Route: 048
     Dates: start: 20210129
  11. ELTROMBOPAG OLAMINE [Interacting]
     Active Substance: ELTROMBOPAG OLAMINE
     Dosage: 25 MG, QD (ON MONDAY, WEDNESDAY AND FRIDAY)
     Route: 048
     Dates: end: 20220214
  12. ELTROMBOPAG OLAMINE [Interacting]
     Active Substance: ELTROMBOPAG OLAMINE
     Dosage: 25 MG, QD
     Route: 048
     Dates: start: 20220122
  13. ELTROMBOPAG OLAMINE [Interacting]
     Active Substance: ELTROMBOPAG OLAMINE
     Dosage: 25 MG, QOD
     Route: 048
  14. ELTROMBOPAG OLAMINE [Interacting]
     Active Substance: ELTROMBOPAG OLAMINE
     Dosage: 25 MG (ON MONDAY, WEDNESDAY AND FRIDAY EVERY WEEK)
     Route: 048
  15. ELTROMBOPAG OLAMINE [Interacting]
     Active Substance: ELTROMBOPAG OLAMINE
     Dosage: 25 MG, UNK (EVERY 3 DAYS)
     Route: 048
  16. ELTROMBOPAG OLAMINE [Interacting]
     Active Substance: ELTROMBOPAG OLAMINE
     Dosage: UNK
     Route: 048
     Dates: start: 20210129
  17. ELTROMBOPAG OLAMINE [Interacting]
     Active Substance: ELTROMBOPAG OLAMINE
     Dosage: 50-75 UNK
     Route: 048
     Dates: start: 20210622
  18. ELTROMBOPAG OLAMINE [Interacting]
     Active Substance: ELTROMBOPAG OLAMINE
     Dosage: UNK
     Route: 048
     Dates: start: 2017, end: 2018
  19. ELTROMBOPAG OLAMINE [Interacting]
     Active Substance: ELTROMBOPAG OLAMINE
     Dosage: UNK
     Route: 048
     Dates: end: 20211229
  20. ELTROMBOPAG OLAMINE [Interacting]
     Active Substance: ELTROMBOPAG OLAMINE
     Dosage: UNK
     Route: 048
  21. ELTROMBOPAG OLAMINE [Interacting]
     Active Substance: ELTROMBOPAG OLAMINE
     Dosage: UNK (3 DAYS IN A WEEK)
     Route: 048

REACTIONS (23)
  - Head injury [Unknown]
  - Platelet count decreased [Unknown]
  - Fall [Recovering/Resolving]
  - Head banging [Recovering/Resolving]
  - Product prescribing error [Recovering/Resolving]
  - Product use in unapproved indication [Recovering/Resolving]
  - SARS-CoV-2 test positive [Unknown]
  - Mouth haemorrhage [Recovering/Resolving]
  - Drug interaction [Unknown]
  - Joint injury [Unknown]
  - Swelling face [Unknown]
  - Limb injury [Unknown]
  - Haemorrhage [Unknown]
  - Platelet count increased [Unknown]
  - Fatigue [Unknown]
  - Arthralgia [Unknown]
  - Influenza [Unknown]
  - Localised infection [Unknown]
  - Skin haemorrhage [Unknown]
  - Therapeutic response decreased [Unknown]
  - Drug ineffective [Unknown]
  - Wrong technique in product usage process [Unknown]
  - Off label use [Unknown]

NARRATIVE: CASE EVENT DATE: 20221011
